FAERS Safety Report 20618304 (Version 1)
Quarter: 2022Q1

REPORT INFORMATION
  Report Type: Spontaneous
  Country: CN (occurrence: CN)
  Receive Date: 20220321
  Receipt Date: 20220321
  Transmission Date: 20220424
  Serious: Yes (Life-Threatening, Other)
  Sender: FDA-Public Use
  Company Number: CN-BAXTER-2022BAX005894

PATIENT
  Age: 70 Year
  Sex: Female
  Weight: 54 kg

DRUGS (24)
  1. CYCLOPHOSPHAMIDE [Suspect]
     Active Substance: CYCLOPHOSPHAMIDE
     Indication: Diffuse large B-cell lymphoma
     Dosage: CYCLOPHOSPHAMIDE 0.6 G + VINDESINE 2 MG + PREDNISONE 60 MG D1-5
     Route: 041
     Dates: start: 20211105
  2. CYCLOPHOSPHAMIDE [Suspect]
     Active Substance: CYCLOPHOSPHAMIDE
     Dosage: CYCLOPHOSPHAMIDE 0.6 G + VINDESINE 2 MG + PREDNISONE 60 MG D1-5, 4 TIMES
     Route: 041
     Dates: start: 20211128, end: 20220206
  3. CYCLOPHOSPHAMIDE [Suspect]
     Active Substance: CYCLOPHOSPHAMIDE
     Dosage: CYCLOPHOSPHAMIDE 0.6G DISSOLVED IN 0.9% SODIUM CHLORIDE INJECTION 250ML
     Route: 041
     Dates: start: 20220302, end: 20220302
  4. CYCLOPHOSPHAMIDE [Suspect]
     Active Substance: CYCLOPHOSPHAMIDE
     Dosage: CYCLOPHOSPHAMIDE DISSOLVED IN 0.9% SODIUM CHLORIDE INJECTION, DOSE REINTRODUCED
     Route: 041
  5. SODIUM CHLORIDE [Suspect]
     Active Substance: SODIUM CHLORIDE
     Indication: Medication dilution
     Dosage: CYCLOPHOSPHAMIDE 0.6G + 0.9% SODIUM CHLORIDE 250ML
     Route: 041
     Dates: start: 20220302, end: 20220302
  6. SODIUM CHLORIDE [Suspect]
     Active Substance: SODIUM CHLORIDE
     Dosage: VINDESINE 2 MG + 0.9% SODIUM CHLORIDE 100ML
     Route: 041
     Dates: start: 20220302, end: 20220302
  7. SODIUM CHLORIDE [Suspect]
     Active Substance: SODIUM CHLORIDE
     Dosage: CYCLOPHOSPHAMIDE + 0.9% SODIUM CHLORIDE, DOSE REINTRODUCED
     Route: 041
  8. SODIUM CHLORIDE [Suspect]
     Active Substance: SODIUM CHLORIDE
     Dosage: VINDESINE  + 0.9% SODIUM CHLORIDE DOSE REINTRODUCED
     Route: 041
  9. DEXTROSE [Suspect]
     Active Substance: DEXTROSE
     Indication: Medication dilution
     Dosage: PIRARUBICIN 40 MG DISSOLVED IN 5% GLUCOSE INJECTION 100ML
     Route: 041
     Dates: start: 20220302, end: 20220302
  10. DEXTROSE [Suspect]
     Active Substance: DEXTROSE
     Dosage: PIRARUBICIN  DISSOLVED IN 5% GLUCOSE INJECTION, DOSE REINTRODUCED
     Route: 041
  11. PIRARUBICIN [Suspect]
     Active Substance: PIRARUBICIN
     Indication: Diffuse large B-cell lymphoma
     Dosage: PIRARUBICIN 40 MG DISSOLVED IN 5% GLUCOSE INJECTION 100ML
     Route: 041
     Dates: start: 20220302, end: 20220302
  12. PIRARUBICIN [Suspect]
     Active Substance: PIRARUBICIN
     Dosage: DOSE REINTRODUCED
     Route: 041
  13. VINDESINE SULFATE [Suspect]
     Active Substance: VINDESINE SULFATE
     Indication: Diffuse large B-cell lymphoma
     Dosage: CYCLOPHOSPHAMIDE 0.6 G + VINDESINE 2 MG + PREDNISONE 60 MG D1-5
     Route: 041
     Dates: start: 20211105
  14. VINDESINE SULFATE [Suspect]
     Active Substance: VINDESINE SULFATE
     Dosage: CYCLOPHOSPHAMIDE 0.6 G + VINDESINE 2 MG + PREDNISONE 60 MG D1-5, 4 TIMES
     Route: 041
     Dates: start: 20211128, end: 20220206
  15. VINDESINE SULFATE [Suspect]
     Active Substance: VINDESINE SULFATE
     Dosage: VINDESINE 2 MG + 0.9% SODIUM CHLORIDE 100ML
     Route: 041
     Dates: start: 20220302, end: 20220302
  16. VINDESINE SULFATE [Suspect]
     Active Substance: VINDESINE SULFATE
     Dosage: VINDESINE + 0.9% SODIUM CHLORIDE DOSE REINTRODUCED
     Route: 041
  17. PREDNISONE [Suspect]
     Active Substance: PREDNISONE
     Indication: Diffuse large B-cell lymphoma
     Dosage: CYCLOPHOSPHAMIDE 0.6 G + VINDESINE 2 MG + PREDNISONE 60 MG D1-5
     Route: 065
     Dates: start: 20211105
  18. PREDNISONE [Suspect]
     Active Substance: PREDNISONE
     Dosage: CYCLOPHOSPHAMIDE 0.6 G + VINDESINE 2 MG + PREDNISONE 60 MG D1-5, 4 TIMES
     Route: 065
     Dates: start: 20211128, end: 20220206
  19. PREDNISONE [Suspect]
     Active Substance: PREDNISONE
     Route: 048
  20. RITUXIMAB [Suspect]
     Active Substance: RITUXIMAB
     Indication: Diffuse large B-cell lymphoma
     Dosage: ZANUBRUTINIB 160 MG BID + RITUXIMAB 600 MG D1
     Route: 065
     Dates: start: 20211105
  21. RITUXIMAB [Suspect]
     Active Substance: RITUXIMAB
     Dosage: ZANUBRUTINIB 160 MG BID + RITUXIMAB 600 MG D1, 4 TIMES
     Route: 065
     Dates: start: 20211128, end: 20220206
  22. LENALIDOMIDE [Suspect]
     Active Substance: LENALIDOMIDE
     Indication: Diffuse large B-cell lymphoma
     Dosage: D1-D10
     Route: 065
     Dates: start: 20211105
  23. LENALIDOMIDE [Suspect]
     Active Substance: LENALIDOMIDE
     Dosage: D1-D10, 4 TIMES
     Route: 065
     Dates: start: 20211128, end: 20220206
  24. DEXTROSE [Concomitant]
     Active Substance: DEXTROSE
     Indication: Medication dilution
     Dosage: PREDNISONE 60 MG + SHENMAI INJECTION 100ML + 5% GLUCOSE 500ML
     Route: 041
     Dates: start: 20220302

REACTIONS (3)
  - Granulocytopenia [Recovering/Resolving]
  - Platelet count decreased [Recovering/Resolving]
  - Myelosuppression [Recovering/Resolving]

NARRATIVE: CASE EVENT DATE: 20220310
